FAERS Safety Report 10194789 (Version 2)
Quarter: 2014Q3

REPORT INFORMATION
  Report Type: Report from Study
  Country: US (occurrence: US)
  Receive Date: 20140526
  Receipt Date: 20140715
  Transmission Date: 20150326
  Serious: Yes (Hospitalization)
  Sender: FDA-Public Use
  Company Number: US-ROCHE-1405934

PATIENT
  Age: 79 Year
  Sex: Male
  Weight: 73.6 kg

DRUGS (5)
  1. IRINOTECAN [Suspect]
     Active Substance: IRINOTECAN
     Indication: COLORECTAL CANCER METASTATIC
     Dosage: MOST RECENT CYCLE PRIOR TO SAE ON: 11/DEC/2013
     Route: 065
     Dates: start: 20131031
  2. 5-FU [Suspect]
     Active Substance: FLUOROURACIL
     Indication: COLORECTAL CANCER METASTATIC
     Dosage: MOST RECENT CYCLE PRIOR TO SAE ON: 11/DEC/2013
     Route: 040
  3. CALCIUM FOLINATE [Suspect]
     Active Substance: LEUCOVORIN CALCIUM
     Indication: COLORECTAL CANCER METASTATIC
     Dosage: MOST RECENT CYCLE PRIOR TO SAE ON: 11/DEC/2013
     Route: 065
     Dates: start: 20131031
  4. 5-FU [Suspect]
     Active Substance: FLUOROURACIL
     Route: 065
  5. BEVACIZUMAB [Suspect]
     Active Substance: BEVACIZUMAB
     Indication: COLORECTAL CANCER METASTATIC
     Dosage: MOST RECENT CYCLE PRIOR TO SAE ON: 11/DEC/2013
     Route: 065
     Dates: start: 20131031

REACTIONS (1)
  - Febrile neutropenia [Not Recovered/Not Resolved]

NARRATIVE: CASE EVENT DATE: 20131219
